FAERS Safety Report 16913849 (Version 1)
Quarter: 2019Q4

REPORT INFORMATION
  Report Type: Spontaneous
  Country: US (occurrence: US)
  Receive Date: 20191014
  Receipt Date: 20191014
  Transmission Date: 20200122
  Serious: No
  Sender: FDA-Public Use
  Company Number: US-C B FLEET CO INC-201903-US-000693

PATIENT
  Sex: Female

DRUGS (1)
  1. MICONAZOLE 3 [Suspect]
     Active Substance: MICONAZOLE NITRATE
     Indication: SKIN IRRITATION
     Dosage: USED ONCE
     Route: 067

REACTIONS (3)
  - Product use in unapproved indication [None]
  - Vulvovaginal pain [Recovered/Resolved]
  - Vulvovaginal burning sensation [Recovering/Resolving]

NARRATIVE: CASE EVENT DATE: 20190311
